FAERS Safety Report 20439075 (Version 1)
Quarter: 2022Q1

REPORT INFORMATION
  Report Type: Spontaneous
  Country: US (occurrence: US)
  Receive Date: 20220207
  Receipt Date: 20220207
  Transmission Date: 20220424
  Serious: No
  Sender: FDA-Public Use
  Company Number: US-PFIZER INC-2017250116

PATIENT
  Age: 40 Year
  Sex: Female

DRUGS (2)
  1. XELJANZ [Suspect]
     Active Substance: TOFACITINIB CITRATE
     Dosage: 20MG, DAILY (5MG / QTY 120 / DAY SUPPLY 30=4 TABS)
  2. XELJANZ [Suspect]
     Active Substance: TOFACITINIB CITRATE
     Dosage: UNK UNK, 2X/DAY (2 TABLETS ORAL TWICE A DAY)
     Route: 048
     Dates: start: 201901

REACTIONS (4)
  - Off label use [Unknown]
  - Product use issue [Unknown]
  - Prescribed overdose [Unknown]
  - Sinusitis [Unknown]

NARRATIVE: CASE EVENT DATE: 20211001
